FAERS Safety Report 8141973-3 (Version None)
Quarter: 2012Q1

REPORT INFORMATION
  Report Type: 
  Country: None (occurrence: None)
  Receive Date: 20120216
  Receipt Date: 20120213
  Transmission Date: 20120608
  Serious: Yes (Hospitalization)
  Sender: FDA-Public Use
  Company Number: US-AMGEN-USASP2011069728

PATIENT
  Age: 53 Year
  Sex: Female

DRUGS (2)
  1. ENBREL [Suspect]
     Indication: RHEUMATOID ARTHRITIS
     Dosage: 50 MG, QWK
     Dates: start: 20110801, end: 20120109
  2. TREXALL [Concomitant]
     Dosage: 15 MG, QWK
     Route: 048

REACTIONS (4)
  - VOMITING [None]
  - SPINAL OPERATION [None]
  - DIARRHOEA [None]
  - INTERVERTEBRAL DISC PROTRUSION [None]
